FAERS Safety Report 5273689-5 (Version None)
Quarter: 2007Q1

REPORT INFORMATION
  Report Type: 
  Country: None (occurrence: None)
  Receive Date: 20070321
  Receipt Date: 20070321
  Transmission Date: 20070707
  Serious: No
  Sender: FDA-Public Use
  Company Number: None

PATIENT
  Sex: Female

DRUGS (1)
  1. GABAPENTIN [Suspect]
     Dosage: TAKE 1 TABLET THREE TIMES A DAY BY MOUTH.
     Route: 048
     Dates: start: 20061201

REACTIONS (1)
  - PHARMACEUTICAL PRODUCT COMPLAINT [None]
